FAERS Safety Report 4326166-X (Version None)
Quarter: 2004Q1

REPORT INFORMATION
  Report Type: 
  Country: None (occurrence: None)
  Receive Date: 20040324
  Receipt Date: 20020807
  Transmission Date: 20041129
  Serious: Yes (Hospitalization)
  Sender: FDA-Public Use
  Company Number: 2002IC000254

PATIENT
  Age: 63 Year
  Sex: 0

DRUGS (2)
  1. FLUOROURACIL [Suspect]
  2. LEUCOVORIN (FOLINIC ACID) [Suspect]

REACTIONS (1)
  - NAUSEA [None]
